FAERS Safety Report 5337145-8 (Version None)
Quarter: 2007Q2

REPORT INFORMATION
  Report Type: 
  Country: None (occurrence: None)
  Receive Date: 20070523
  Receipt Date: 20070521
  Transmission Date: 20071010
  Serious: Yes (Life-Threatening)
  Sender: FDA-Public Use
  Company Number: 2007-158585-NL

PATIENT
  Age: 74 Year
  Sex: Male

DRUGS (2)
  1. VECURONIUM BROMIDE [Suspect]
     Dosage: 1 MG ONCE INTRAVENOUS (NOS)
     Route: 042
     Dates: start: 20061020
  2. PROPOFOL [Concomitant]

REACTIONS (7)
  - ATRIAL FLUTTER [None]
  - BLOOD PRESSURE SYSTOLIC INCREASED [None]
  - CEREBRAL DISORDER [None]
  - CONVULSION [None]
  - OVERDOSE [None]
  - PROTEIN TOTAL DECREASED [None]
  - RESPIRATORY ARREST [None]
